FAERS Safety Report 25818764 (Version 2)
Quarter: 2025Q4

REPORT INFORMATION
  Report Type: Report from Study
  Country: US (occurrence: US)
  Receive Date: 20250918
  Receipt Date: 20251113
  Transmission Date: 20260118
  Serious: Yes (Hospitalization, Other)
  Sender: SPRINGWORKS THERAPEUTIC
  Company Number: US-SPRINGWORKS THERAPEUTICS-SW-003226

PATIENT
  Age: 20 Year
  Sex: Male

DRUGS (12)
  1. MIRDAMETINIB [Suspect]
     Active Substance: MIRDAMETINIB
     Indication: Neurofibroma
     Dosage: 2 MILLIGRAM, BID 3 WEEKS ON 1 WEEK OFF
     Dates: start: 20250808
  2. MIRDAMETINIB [Suspect]
     Active Substance: MIRDAMETINIB
     Dosage: TOTAL 4 MG- 2 CAPSULES BY MOUTH BID FOR 3 WEEKS ON THEN 1 WEEK OFF
     Dates: start: 20250808
  3. MIRDAMETINIB [Suspect]
     Active Substance: MIRDAMETINIB
     Dosage: UNK
  4. CLINDAMYCIN AND BENZOYL PEROXIDE [Concomitant]
     Active Substance: BENZOYL PEROXIDE\CLINDAMYCIN PHOSPHATE
     Indication: Product used for unknown indication
  5. CYPROHEPTADINE [Concomitant]
     Active Substance: CYPROHEPTADINE
     Indication: Product used for unknown indication
  6. GABAPENTIN [Concomitant]
     Active Substance: GABAPENTIN
     Indication: Product used for unknown indication
  7. KEFLEX [Concomitant]
     Active Substance: CEPHALEXIN
     Indication: Product used for unknown indication
  8. ONDANSETRON [Concomitant]
     Active Substance: ONDANSETRON
     Indication: Product used for unknown indication
  9. ALUMINUM HYDROXIDE\MAGNESIUM CARBONATE [Concomitant]
     Active Substance: ALUMINUM HYDROXIDE\MAGNESIUM CARBONATE
     Indication: Product used for unknown indication
  10. HIGH DENSITY POLYETHYLENE [Concomitant]
     Active Substance: HIGH DENSITY POLYETHYLENE
     Indication: Product used for unknown indication
  11. VITAMIN D NOS [Concomitant]
     Active Substance: CHOLECALCIFEROL\ERGOCALCIFEROL
     Indication: Product used for unknown indication
  12. ZYRTEC [Concomitant]
     Active Substance: CETIRIZINE HYDROCHLORIDE
     Indication: Product used for unknown indication

REACTIONS (8)
  - Cardiac disorder [Recovered/Resolved]
  - Electrocardiogram T wave abnormal [Recovered/Resolved]
  - Chest pain [Unknown]
  - Syncope [Unknown]
  - Dehydration [Unknown]
  - Hypokalaemia [Unknown]
  - Vomiting [Recovered/Resolved]
  - Incorrect dose administered [Unknown]

NARRATIVE: CASE EVENT DATE: 20250808
